FAERS Safety Report 25935363 (Version 1)
Quarter: 2025Q4

REPORT INFORMATION
  Report Type: Spontaneous
  Country: US (occurrence: US)
  Receive Date: 20251017
  Receipt Date: 20251017
  Transmission Date: 20260117
  Serious: Yes (Other)
  Sender: SANOFI AVENTIS
  Company Number: US-SA-2025SA308065

PATIENT
  Age: 61 Year
  Sex: Male
  Weight: 120.45 kg

DRUGS (1)
  1. DUPIXENT [Suspect]
     Active Substance: DUPILUMAB
     Indication: Pemphigoid
     Dosage: 300 MG, QOW
     Route: 058
     Dates: end: 20250915

REACTIONS (7)
  - Pemphigoid [Unknown]
  - Condition aggravated [Unknown]
  - Product dose omission issue [Unknown]
  - Rash [Unknown]
  - Pain [Unknown]
  - Erythema [Unknown]
  - Dermatitis [Unknown]

NARRATIVE: CASE EVENT DATE: 20250101
